FAERS Safety Report 20551329 (Version 1)
Quarter: 2022Q1

REPORT INFORMATION
  Report Type: Spontaneous
  Country: US (occurrence: US)
  Receive Date: 20220304
  Receipt Date: 20220304
  Transmission Date: 20220423
  Serious: Yes (Other)
  Sender: FDA-Public Use
  Company Number: US-NOVOPROD-896785

PATIENT
  Sex: Female

DRUGS (5)
  1. LEVEMIR [Suspect]
     Active Substance: INSULIN DETEMIR
     Dosage: 113.5 UNITS/DAY
     Route: 064
  2. LEVEMIR [Suspect]
     Active Substance: INSULIN DETEMIR
     Indication: Type 2 diabetes mellitus
     Dosage: 30 UNITS TWICE DAILY
     Route: 064
  3. LEVEMIR [Suspect]
     Active Substance: INSULIN DETEMIR
     Dosage: 175 UNITS DAILY (4 INJECTIONS OF 40-50 UNITS EVERY 6 HOURS)
     Route: 064
  4. INSULIN ASPART [Suspect]
     Active Substance: INSULIN ASPART
     Indication: Type 2 diabetes mellitus
     Dosage: 170 UNITS DAILY (44 UNITS BEFORE BREAKFAST, 38 UNITS BEFORE LUNCH, AND 88 UNITS BEFORE DINNER)
     Route: 064
  5. INSULIN LISPRO [Concomitant]
     Active Substance: INSULIN LISPRO
     Indication: Type 2 diabetes mellitus
     Dosage: 12 UNITS BEFORE MEALS
     Route: 064

REACTIONS (2)
  - Shoulder dystocia [Unknown]
  - Foetal exposure during pregnancy [Recovered/Resolved]
